FAERS Safety Report 24909667 (Version 1)
Quarter: 2025Q1

REPORT INFORMATION
  Report Type: Spontaneous
  Country: US (occurrence: US)
  Receive Date: 20250131
  Receipt Date: 20250131
  Transmission Date: 20250409
  Serious: No
  Sender: PERRIGO
  Company Number: US-PERRIGO-24US001640

PATIENT
  Sex: Male

DRUGS (4)
  1. CETIRIZINE HYDROCHLORIDE [Suspect]
     Active Substance: CETIRIZINE HYDROCHLORIDE
     Indication: Ear congestion
     Dosage: 10 MG, QD
     Route: 048
     Dates: start: 20240205, end: 20240212
  2. CETIRIZINE HYDROCHLORIDE [Suspect]
     Active Substance: CETIRIZINE HYDROCHLORIDE
     Indication: Ear discomfort
  3. AFRIN [Suspect]
     Active Substance: OXYMETAZOLINE HYDROCHLORIDE
     Indication: Ear congestion
     Route: 045
     Dates: start: 20240205
  4. AFRIN [Suspect]
     Active Substance: OXYMETAZOLINE HYDROCHLORIDE
     Indication: Ear discomfort

REACTIONS (3)
  - Haematochezia [Unknown]
  - Drug interaction [Unknown]
  - Off label use [Unknown]

NARRATIVE: CASE EVENT DATE: 20240205
